FAERS Safety Report 6815016-5 (Version None)
Quarter: 2010Q2

REPORT INFORMATION
  Report Type: 
  Country: None (occurrence: None)
  Receive Date: 20100630
  Receipt Date: 20100630
  Transmission Date: 20101027
  Serious: Yes (Hospitalization, Other)
  Sender: FDA-Public Use
  Company Number: None

PATIENT
  Age: 66 Year
  Sex: Female
  Weight: 58.9676 kg

DRUGS (2)
  1. BENICAR [Suspect]
     Indication: HYPERTENSION
     Dosage: 40 MGS DAILY PO
     Route: 048
     Dates: start: 20050101, end: 20100101
  2. PREMARIN [Concomitant]

REACTIONS (6)
  - COELIAC DISEASE [None]
  - ENTERITIS [None]
  - MALABSORPTION [None]
  - NO THERAPEUTIC RESPONSE [None]
  - PANCREATIC NEOPLASM [None]
  - WEIGHT DECREASED [None]
